FAERS Safety Report 5080516-8 (Version None)
Quarter: 2006Q3

REPORT INFORMATION
  Report Type: 
  Country: None (occurrence: None)
  Receive Date: 20060809
  Receipt Date: 20060724
  Transmission Date: 20061208
  Serious: Yes (Hospitalization, Other)
  Sender: FDA-Public Use
  Company Number: 2006AL001960

PATIENT
  Age: 60 Year
  Sex: Male

DRUGS (7)
  1. DOXAZOSIN MESYLATE TABLETS, 8 MG (BASE) (PUREPAC) (DOXAZOSIN MESILATE [Suspect]
     Dosage: 2 MG; QAM
  2. TRAMADOL HCL [Suspect]
     Dosage: PRN
  3. AMLODIPINE [Concomitant]
  4. DICLOFENAC [Concomitant]
  5. OMEPRAZOLE [Concomitant]
  6. ACETAMINOPHEN W/ CODEINE [Concomitant]
  7. LISINOPRIL [Concomitant]

REACTIONS (1)
  - PANCREATITIS [None]
